FAERS Safety Report 6746394-3 (Version None)
Quarter: 2010Q2

REPORT INFORMATION
  Report Type: 
  Country: None (occurrence: None)
  Receive Date: 20100528
  Receipt Date: 20090706
  Transmission Date: 20101027
  Serious: No
  Sender: FDA-Public Use
  Company Number: A0791206A

PATIENT
  Age: 9 Year
  Sex: Male

DRUGS (6)
  1. FLOLAN [Suspect]
     Dosage: 57ML CONTINUOUS
     Route: 042
     Dates: start: 20080815
  2. ATENOLOL [Concomitant]
  3. MAGNESIUM GLUCONATE [Concomitant]
  4. LASIX [Concomitant]
  5. ZANTAC [Concomitant]
  6. REVATIO [Concomitant]

REACTIONS (4)
  - HEADACHE [None]
  - HYPOAESTHESIA [None]
  - HYPOAESTHESIA ORAL [None]
  - MIGRAINE [None]
